FAERS Safety Report 13703963 (Version 1)
Quarter: 2017Q2

REPORT INFORMATION
  Report Type: Spontaneous
  Country: FR (occurrence: FR)
  Receive Date: 20170629
  Receipt Date: 20170629
  Transmission Date: 20170830
  Serious: Yes (Hospitalization, Other)
  Sender: FDA-Public Use
  Company Number: FR-BAXTER-2017BAX025509

PATIENT
  Sex: Female

DRUGS (61)
  1. CELLTOP 100 MG/5 ML, SOLUTION INJECTABLE POUR PERFUSION [Suspect]
     Active Substance: ETOPOSIDE
     Indication: DIFFUSE LARGE B-CELL LYMPHOMA STAGE IV
     Route: 042
     Dates: start: 2016, end: 20161120
  2. VITAMINE A [Suspect]
     Active Substance: RETINOL
     Indication: KERATITIS
     Route: 048
  3. TIENAM [Suspect]
     Active Substance: CILASTATIN SODIUM\IMIPENEM
     Indication: ENTEROBACTER INFECTION
     Route: 065
     Dates: start: 20170117, end: 20170224
  4. MEROPENEM ANHYDRE [Suspect]
     Active Substance: MEROPENEM
     Indication: LUNG INFECTION
     Route: 042
     Dates: start: 2016, end: 2016
  5. OXYNORM [Suspect]
     Active Substance: OXYCODONE HYDROCHLORIDE
     Indication: PAIN
     Route: 042
     Dates: start: 2016
  6. AMBISOME [Suspect]
     Active Substance: AMPHOTERICIN B
     Indication: ADVERSE EVENT
     Route: 065
     Dates: start: 20161209
  7. AMBISOME [Suspect]
     Active Substance: AMPHOTERICIN B
     Dosage: DUAL THERAPY
     Route: 065
     Dates: start: 20161230, end: 20170418
  8. METHOTREXATE. [Suspect]
     Active Substance: METHOTREXATE
     Indication: DIFFUSE LARGE B-CELL LYMPHOMA STAGE IV
     Route: 042
     Dates: start: 2016, end: 2016
  9. DEPOCYTE [Suspect]
     Active Substance: CYTARABINE
     Indication: DIFFUSE LARGE B-CELL LYMPHOMA STAGE IV
     Route: 042
     Dates: start: 20160912, end: 20160912
  10. HALDOL [Suspect]
     Active Substance: HALOPERIDOL
     Indication: HALLUCINATION
     Route: 048
  11. TIORFAN [Suspect]
     Active Substance: RACECADOTRIL
     Indication: DIARRHOEA
     Route: 048
     Dates: start: 2016, end: 2016
  12. IMOVANE [Suspect]
     Active Substance: ZOPICLONE
     Indication: INSOMNIA
     Dosage: SCORED COATED TABLET; AS NEEDED; SINCE ATLEAST 2017
     Route: 048
     Dates: start: 2017
  13. AMIKACINE [Suspect]
     Active Substance: AMIKACIN
     Indication: INFECTION
     Route: 042
     Dates: start: 2016, end: 2016
  14. CANCIDAS [Suspect]
     Active Substance: CASPOFUNGIN ACETATE
     Indication: ADVERSE EVENT
     Dosage: DUAL THERAPY
     Route: 065
     Dates: start: 20161230, end: 20170213
  15. RIFADINE [Suspect]
     Active Substance: RIFAMPIN
     Indication: ADVERSE EVENT
     Dosage: TRIPLE THERAPY
     Route: 065
     Dates: start: 20170323
  16. TIENAM [Suspect]
     Active Substance: CILASTATIN SODIUM\IMIPENEM
     Indication: FEBRILE NEUTROPENIA
     Route: 065
     Dates: start: 20170317, end: 20170327
  17. DIPEPTIVEN [Suspect]
     Active Substance: GLUTAMINE
     Indication: AMINO ACID LEVEL DECREASED
     Dosage: SOLUTION FOR DILUTION FOR INFUSION
     Route: 042
     Dates: end: 2016
  18. MODAMIDE [Suspect]
     Active Substance: AMILORIDE HYDROCHLORIDE
     Indication: PRODUCT USED FOR UNKNOWN INDICATION
     Route: 048
     Dates: start: 2016, end: 2016
  19. SPIRONOLACTONE. [Suspect]
     Active Substance: SPIRONOLACTONE
     Indication: PRODUCT USED FOR UNKNOWN INDICATION
     Route: 048
     Dates: start: 2016, end: 2016
  20. BISOCE [Suspect]
     Active Substance: BISOPROLOL
     Indication: PRODUCT USED FOR UNKNOWN INDICATION
     Dosage: SCORED COATED TABLET
     Route: 048
     Dates: start: 2016, end: 2016
  21. MIDAZOLAM [Suspect]
     Active Substance: MIDAZOLAM HYDROCHLORIDE
     Indication: SEDATION
     Route: 042
     Dates: start: 2016, end: 2016
  22. MABTHERA [Suspect]
     Active Substance: RITUXIMAB
     Indication: DIFFUSE LARGE B-CELL LYMPHOMA STAGE IV
     Route: 042
     Dates: start: 2016, end: 20161010
  23. PREDNISONE. [Suspect]
     Active Substance: PREDNISONE
     Indication: DIFFUSE LARGE B-CELL LYMPHOMA STAGE IV
     Route: 065
     Dates: start: 2016
  24. CALCIUM FOLINATE [Suspect]
     Active Substance: LEUCOVORIN CALCIUM
     Indication: PRODUCT USED FOR UNKNOWN INDICATION
     Route: 042
     Dates: start: 2016, end: 20161120
  25. HYDROCORTANCYL [Suspect]
     Active Substance: PREDNISONE
     Indication: PRODUCT USED FOR UNKNOWN INDICATION
     Route: 042
     Dates: start: 2016, end: 20161021
  26. LAROXYL [Suspect]
     Active Substance: AMITRIPTYLINE
     Indication: PRODUCT USED FOR UNKNOWN INDICATION
     Route: 048
     Dates: start: 201610
  27. TIENAM [Suspect]
     Active Substance: CILASTATIN SODIUM\IMIPENEM
     Indication: LUNG INFECTION
     Route: 042
     Dates: start: 201610
  28. VANCOMYCIN [Suspect]
     Active Substance: VANCOMYCIN
     Indication: INFECTION
     Route: 042
     Dates: start: 2016, end: 2016
  29. CYMBALTA [Suspect]
     Active Substance: DULOXETINE HYDROCHLORIDE
     Indication: DEPRESSION
     Dosage: ATLEAST SINCE 2016
     Route: 048
     Dates: start: 2016
  30. NEFOPAM HYDROCHLORIDE [Suspect]
     Active Substance: NEFOPAM HYDROCHLORIDE
     Indication: PAIN
     Dosage: IF PAIN ONCE IN 4 HOURS
     Route: 048
     Dates: start: 2016
  31. ZOPHREN [Suspect]
     Active Substance: ONDANSETRON
     Indication: VOMITING
     Dosage: 8MG/4ML; 1 VIAL/24HOURS
     Route: 065
  32. TITANOREINE [Suspect]
     Active Substance: CARRAGEENAN\TITANIUM\ZINC
     Indication: HAEMORRHOIDS
     Route: 003
     Dates: start: 2016, end: 2016
  33. VFEND [Suspect]
     Active Substance: VORICONAZOLE
     Indication: CANDIDA INFECTION
     Route: 042
     Dates: start: 2016, end: 2016
  34. TOPALGIC (FRANCE) [Suspect]
     Active Substance: TRAMADOL
     Indication: PAIN
     Route: 048
     Dates: start: 2016, end: 2016
  35. DEBRIDAT [Suspect]
     Active Substance: TRIMEBUTINE MALEATE
     Indication: PAIN
     Dosage: 50MG/5ML; VIAL
     Route: 048
     Dates: start: 2016, end: 2016
  36. ETHAMBUTOL [Suspect]
     Active Substance: ETHAMBUTOL HYDROCHLORIDE
     Indication: ADVERSE EVENT
     Dosage: TRIPLE THERAPY
     Route: 065
     Dates: start: 20170323
  37. KAYEXALATE [Suspect]
     Active Substance: SODIUM POLYSTYRENE SULFONATE
     Indication: HYPERKALAEMIA
     Dosage: POWDER FOR ORAL AND RECTAL SUSPENSION
     Route: 048
     Dates: start: 2016, end: 2016
  38. CIPROFLOXACINE [Suspect]
     Active Substance: CIPROFLOXACIN
     Indication: PRODUCT USED FOR UNKNOWN INDICATION
     Route: 042
     Dates: start: 2016, end: 2016
  39. VINCRISTINE SULFATE. [Suspect]
     Active Substance: VINCRISTINE SULFATE
     Indication: DIFFUSE LARGE B-CELL LYMPHOMA STAGE IV
     Route: 042
     Dates: start: 2016, end: 20161011
  40. HYDROXYZINE HYDROCHLORIDE. [Suspect]
     Active Substance: HYDROXYZINE HYDROCHLORIDE
     Indication: PRODUCT USED FOR UNKNOWN INDICATION
     Route: 042
     Dates: start: 2016, end: 2016
  41. ENDOXAN 1000 MG, POUDRE POUR SOLUTION INJECTABLE [Suspect]
     Active Substance: CYCLOPHOSPHAMIDE
     Indication: DIFFUSE LARGE B-CELL LYMPHOMA STAGE IV
     Route: 042
     Dates: start: 2016, end: 20161014
  42. METHOTREXATE. [Suspect]
     Active Substance: METHOTREXATE
     Dosage: 2ND COURSE
     Route: 042
     Dates: start: 20161010, end: 20161021
  43. PARACETAMOL [Suspect]
     Active Substance: ACETAMINOPHEN
     Indication: PAIN
     Route: 048
     Dates: start: 2016, end: 2016
  44. CYTARABINE. [Suspect]
     Active Substance: CYTARABINE
     Indication: DIFFUSE LARGE B-CELL LYMPHOMA STAGE IV
     Route: 042
     Dates: start: 2016, end: 20161120
  45. FLAGYL [Suspect]
     Active Substance: METRONIDAZOLE\METRONIDAZOLE HYDROCHLORIDE
     Indication: CLOSTRIDIUM DIFFICILE COLITIS
     Route: 065
     Dates: start: 2016
  46. SMECTA [Suspect]
     Active Substance: MONTMORILLONITE
     Indication: DIARRHOEA
     Route: 048
     Dates: start: 2016, end: 2016
  47. ALPRAZOLAM. [Suspect]
     Active Substance: ALPRAZOLAM
     Indication: ANXIETY
     Dosage: ATLEAST SINCE 2016
     Route: 048
     Dates: start: 2016
  48. INNOHEP [Suspect]
     Active Substance: TINZAPARIN SODIUM
     Indication: VENOUS THROMBOSIS
     Route: 058
  49. TRANXENE T-TAB [Suspect]
     Active Substance: CLORAZEPATE DIPOTASSIUM
     Indication: ANXIETY
     Route: 048
     Dates: start: 2016, end: 2016
  50. ECONAZOLE [Suspect]
     Active Substance: ECONAZOLE
     Indication: INTERTRIGO
     Route: 067
     Dates: start: 2016, end: 2016
  51. LASILIX FAIBLE [Suspect]
     Active Substance: FUROSEMIDE
     Indication: PRODUCT USED FOR UNKNOWN INDICATION
     Route: 048
     Dates: start: 2016, end: 2016
  52. DOXORUBICINE HYDROCHLORIDE [Suspect]
     Active Substance: DOXORUBICIN HYDROCHLORIDE
     Indication: DIFFUSE LARGE B-CELL LYMPHOMA STAGE IV
     Route: 042
     Dates: start: 2016, end: 20161012
  53. DIFFU K [Suspect]
     Active Substance: POTASSIUM CHLORIDE
     Indication: HYPOKALAEMIA
     Route: 048
     Dates: start: 2016
  54. NIVESTIM [Suspect]
     Active Substance: FILGRASTIM
     Indication: NEUTROPENIA
     Route: 042
     Dates: start: 2016, end: 2016
  55. ZECLAR [Suspect]
     Active Substance: CLARITHROMYCIN
     Indication: ADVERSE EVENT
     Dosage: TRIPLE THERAPY
     Route: 065
     Dates: start: 20170323
  56. METHYLPREDNISOLONE. [Suspect]
     Active Substance: METHYLPREDNISOLONE
     Indication: PRODUCT USED FOR UNKNOWN INDICATION
     Route: 042
     Dates: start: 2016, end: 20161011
  57. PANTOPRAZOLE [Suspect]
     Active Substance: PANTOPRAZOLE
     Indication: GASTRIC ULCER
     Dosage: AT LEAST SINCE 2016
     Route: 042
     Dates: start: 2016
  58. VERSATIS [Suspect]
     Active Substance: LIDOCAINE
     Indication: PAIN
     Route: 003
     Dates: start: 2016, end: 2016
  59. MOVICOL [Suspect]
     Active Substance: POLYETHYLENE GLYCOL 3350\POTASSIUM CHLORIDE\SODIUM BICARBONATE\SODIUM CHLORIDE
     Indication: CONSTIPATION
     Route: 048
     Dates: start: 2016, end: 2016
  60. PRIMPERAN [Suspect]
     Active Substance: METOCLOPRAMIDE HYDROCHLORIDE
     Indication: NAUSEA
     Dosage: SCORED TABLET; AS NEEDED
     Route: 048
     Dates: start: 2016
  61. FORTUM [Suspect]
     Active Substance: CEFTAZIDIME
     Indication: ADVERSE EVENT
     Route: 065
     Dates: start: 20170224, end: 20170313

REACTIONS (16)
  - Acute kidney injury [Unknown]
  - Facial paralysis [Unknown]
  - Clostridium difficile colitis [Unknown]
  - Mucosal inflammation [Unknown]
  - Sepsis [Unknown]
  - Lung infection [Unknown]
  - Febrile neutropenia [Unknown]
  - Bacillus bacteraemia [Unknown]
  - Hallucination [Unknown]
  - Neurological decompensation [Unknown]
  - Enterobacter infection [Unknown]
  - Condition aggravated [Unknown]
  - Sensorimotor disorder [Unknown]
  - Inflammation [Unknown]
  - Granulomatous liver disease [Not Recovered/Not Resolved]
  - General physical health deterioration [Unknown]

NARRATIVE: CASE EVENT DATE: 2016
